FAERS Safety Report 6728893-3 (Version None)
Quarter: 2010Q2

REPORT INFORMATION
  Report Type: 
  Country: None (occurrence: None)
  Receive Date: 20100517
  Receipt Date: 20100304
  Transmission Date: 20101027
  Serious: No
  Sender: FDA-Public Use
  Company Number: US-ABBOTT-10P-163-0630526-00

PATIENT
  Sex: Female
  Weight: 69.916 kg

DRUGS (4)
  1. SIMCOR [Suspect]
     Indication: BLOOD TRIGLYCERIDES INCREASED
     Dates: start: 20100226, end: 20100301
  2. SIMCOR [Suspect]
     Indication: HIGH DENSITY LIPOPROTEIN DECREASED
  3. MAXZIDE [Concomitant]
     Indication: DRUG USE FOR UNKNOWN INDICATION
  4. ATENOLOL [Concomitant]
     Indication: DRUG USE FOR UNKNOWN INDICATION

REACTIONS (5)
  - ABDOMINAL PAIN UPPER [None]
  - DIZZINESS [None]
  - DYSPEPSIA [None]
  - HEADACHE [None]
  - TINNITUS [None]
